FAERS Safety Report 4355693-4 (Version None)
Quarter: 2004Q2

REPORT INFORMATION
  Report Type: 
  Country: None (occurrence: None)
  Receive Date: 20040505
  Receipt Date: 20040426
  Transmission Date: 20050107
  Serious: Yes (Other)
  Sender: FDA-Public Use
  Company Number: 2004-04-1681

PATIENT
  Age: 47 Year
  Sex: Female
  Weight: 69.4003 kg

DRUGS (7)
  1. SOLGANAL (AUROTHIOGLUCOSE) INJECTABLE SUSPENSION [Suspect]
     Indication: PEMPHIGUS
     Dosage: TEST DOSE INTRAMUSCULAR;  25 MG  INTRAMUSCULAR;  50 MG QW INTRAMUSCULAR
     Route: 030
     Dates: start: 19990927, end: 19990927
  2. SOLGANAL (AUROTHIOGLUCOSE) INJECTABLE SUSPENSION [Suspect]
     Indication: PEMPHIGUS
     Dosage: TEST DOSE INTRAMUSCULAR;  25 MG  INTRAMUSCULAR;  50 MG QW INTRAMUSCULAR
     Route: 030
     Dates: start: 19991006, end: 19991006
  3. SOLGANAL (AUROTHIOGLUCOSE) INJECTABLE SUSPENSION [Suspect]
     Indication: PEMPHIGUS
     Dosage: TEST DOSE INTRAMUSCULAR;  25 MG  INTRAMUSCULAR;  50 MG QW INTRAMUSCULAR
     Route: 030
     Dates: start: 19991013
  4. PREDNISONE [Suspect]
     Indication: PEMPHIGUS
     Dosage: 80 MG QD;  60 MG QD;  40 MG QD
     Dates: start: 19990920, end: 19991006
  5. PREDNISONE [Suspect]
     Indication: PEMPHIGUS
     Dosage: 80 MG QD;  60 MG QD;  40 MG QD
     Dates: start: 19991006, end: 19991115
  6. PREDNISONE [Suspect]
     Indication: PEMPHIGUS
     Dosage: 80 MG QD;  60 MG QD;  40 MG QD
     Dates: start: 19991115
  7. DAPSONE [Concomitant]

REACTIONS (10)
  - BLISTER [None]
  - CANDIDIASIS [None]
  - CHEILITIS [None]
  - CUSHINGOID [None]
  - DISCOMFORT [None]
  - DRUG INEFFECTIVE [None]
  - DYSPEPSIA [None]
  - GENERALISED ERYTHEMA [None]
  - RASH MACULAR [None]
  - TOXIC SKIN ERUPTION [None]
